FAERS Safety Report 8619438 (Version 2)
Quarter: 2012Q4

REPORT INFORMATION
  Report Type: 
  Country: US (occurrence: US)
  Receive Date: 20120618
  Receipt Date: 20121029
  Transmission Date: 20130627
  Serious: No
  Sender: FDA-Public Use
  Company Number: US-PFIZER INC-2012141968

PATIENT
  Age: 77 Year
  Sex: Female
  Weight: 54 kg

DRUGS (5)
  1. FLAGYL [Suspect]
     Indication: FOOD POISONING
     Dosage: UNK
     Route: 042
     Dates: start: 20120401, end: 201204
  2. FLAGYL [Suspect]
     Indication: COLITIS
     Dosage: UNK, 3x/day
     Route: 048
     Dates: start: 20120513, end: 201205
  3. FLAGYL [Suspect]
     Indication: BACTERIAL INFECTION
  4. CIPRO [Suspect]
     Indication: FOOD POISONING
     Dosage: UNK
     Dates: start: 20120401, end: 201204
  5. LIPITOR [Concomitant]
     Indication: HIGH CHOLESTEROL
     Dosage: 10 mg, UNK

REACTIONS (2)
  - Visual impairment [Not Recovered/Not Resolved]
  - Ill-defined disorder [Unknown]
